FAERS Safety Report 8501432-2 (Version None)
Quarter: 2012Q3

REPORT INFORMATION
  Report Type: 
  Country: None (occurrence: None)
  Receive Date: 20120710
  Receipt Date: 20080929
  Transmission Date: 20120928
  Serious: Yes (Hospitalization, Other)
  Sender: FDA-Public Use
  Company Number: TR-ROCHE-GNE266887

PATIENT
  Sex: Female
  Weight: 92.098 kg

DRUGS (1)
  1. XOLAIR [Suspect]
     Indication: ASTHMA
     Dosage: 225 MG, UNK
     Route: 058
     Dates: start: 20080821

REACTIONS (8)
  - MALAISE [None]
  - OBSTRUCTION [None]
  - PAIN IN EXTREMITY [None]
  - COUGH [None]
  - DRUG INEFFECTIVE [None]
  - INFLUENZA [None]
  - LIP SWELLING [None]
  - PRODUCTIVE COUGH [None]
